FAERS Safety Report 10865977 (Version 4)
Quarter: 2015Q2

REPORT INFORMATION
  Report Type: Report from Study
  Country: US (occurrence: US)
  Receive Date: 20150224
  Receipt Date: 20150507
  Transmission Date: 20150821
  Serious: Yes (Hospitalization)
  Sender: FDA-Public Use
  Company Number: US-ACTELION-A-NJ2015-113135

PATIENT
  Age: 38 Year
  Sex: Female

DRUGS (4)
  1. MACITENTAN [Suspect]
     Active Substance: MACITENTAN
     Indication: PULMONARY ARTERIAL HYPERTENSION
     Dosage: 10 MG, QD
     Route: 048
  2. REMODULIN [Suspect]
     Active Substance: TREPROSTINIL
     Dosage: 9 UNK, UNK
     Route: 042
     Dates: start: 201312
  3. COUMADIN [Concomitant]
     Active Substance: WARFARIN SODIUM
     Dosage: 2.5 MG, PRN
  4. REMODULIN [Suspect]
     Active Substance: TREPROSTINIL
     Indication: PULMONARY HYPERTENSION
     Dosage: 70 NG/KG, PER MIN
     Route: 058

REACTIONS (9)
  - Cardiac failure [Recovering/Resolving]
  - Malaise [Recovering/Resolving]
  - Catheter site rash [Unknown]
  - Dizziness [Recovering/Resolving]
  - Pain [Unknown]
  - Fatigue [Unknown]
  - Catheter site pain [Recovering/Resolving]
  - Catheter site infection [Recovering/Resolving]
  - Medical device complication [Unknown]

NARRATIVE: CASE EVENT DATE: 20150212
